FAERS Safety Report 7331003-5 (Version None)
Quarter: 2011Q1

REPORT INFORMATION
  Report Type: 
  Country: None (occurrence: None)
  Receive Date: 20110225
  Receipt Date: 20110225
  Transmission Date: 20110831
  Serious: Yes (Life-Threatening, Hospitalization, Other)
  Sender: FDA-Public Use
  Company Number: None

PATIENT
  Sex: Female
  Weight: 65.7716 kg

DRUGS (1)
  1. SEASONIQUE [Suspect]
     Indication: MENSTRUAL DISORDER
     Dosage: 1 PILL DAILY PO
     Route: 048
     Dates: start: 20090801, end: 20091125

REACTIONS (10)
  - ABDOMINAL PAIN [None]
  - GASTRITIS [None]
  - HEPATIC HAEMATOMA [None]
  - THROMBOSIS [None]
  - IATROGENIC INJURY [None]
  - DEEP VEIN THROMBOSIS [None]
  - PANCREATITIS [None]
  - PLEURAL EFFUSION [None]
  - NAUSEA [None]
  - HEADACHE [None]
